FAERS Safety Report 4970265-6 (Version None)
Quarter: 2006Q2

REPORT INFORMATION
  Report Type: 
  Country: None (occurrence: None)
  Receive Date: 20060406
  Receipt Date: 20060405
  Transmission Date: 20061013
  Serious: Yes (Hospitalization, Other)
  Sender: FDA-Public Use
  Company Number: HQWYE518024MAR06

PATIENT
  Age: 54 Year
  Sex: Male

DRUGS (5)
  1. ADVIL [Suspect]
     Indication: LARYNGITIS
     Dosage: 200 MG
     Route: 048
     Dates: start: 20060206, end: 20060206
  2. AMOXICILLIN TRIHYDRATE [Suspect]
     Indication: LARYNGITIS
     Dates: start: 20060206, end: 20060206
  3. ACETAMINOPHEN [Suspect]
     Indication: LARYNGITIS
     Dates: start: 20060206, end: 20060209
  4. HEXASPRAY (BICLOTYMOL, SPRAY) [Suspect]
     Indication: LARYNGITIS
     Dates: start: 20060203, end: 20060210
  5. PREDNISOLONE [Suspect]
     Indication: LARYNGEAL OEDEMA
     Dates: start: 20060206, end: 20060210

REACTIONS (7)
  - BLOOD PRESSURE INCREASED [None]
  - CARDIAC MURMUR [None]
  - DYSPHONIA [None]
  - EPIGLOTTITIS [None]
  - PARAPHARYNGEAL ABSCESS [None]
  - PHARYNGEAL OEDEMA [None]
  - STAPHYLOCOCCAL ABSCESS [None]
